FAERS Safety Report 14905007 (Version 1)
Quarter: 2018Q2

REPORT INFORMATION
  Report Type: Spontaneous
  Country: US (occurrence: US)
  Receive Date: 20180517
  Receipt Date: 20180517
  Transmission Date: 20180711
  Serious: No
  Sender: FDA-Public Use
  Company Number: US-SA-2017SA220286

PATIENT
  Age: 72 Year
  Sex: Female

DRUGS (3)
  1. HUMALOG [Concomitant]
     Active Substance: INSULIN LISPRO
  2. SOLOSTAR [Suspect]
     Active Substance: DEVICE
     Indication: TYPE 2 DIABETES MELLITUS
     Dates: start: 2007
  3. LANTUS SOLOSTAR [Suspect]
     Active Substance: INSULIN GLARGINE
     Indication: TYPE 2 DIABETES MELLITUS
     Dosage: DOSE:17 UNITS OF THE LANTUS SOLOSTAR PEN IN THE AM AND 34 UNITS IN THE PM.
     Route: 058
     Dates: start: 2007

REACTIONS (5)
  - Condition aggravated [Unknown]
  - Cough [Unknown]
  - Product use issue [Unknown]
  - Visual impairment [Unknown]
  - Throat clearing [Unknown]
